FAERS Safety Report 15928641 (Version 3)
Quarter: 2019Q2

REPORT INFORMATION
  Report Type: Spontaneous
  Country: US (occurrence: US)
  Receive Date: 20190206
  Receipt Date: 20190425
  Transmission Date: 20190711
  Serious: Yes (Other)
  Sender: FDA-Public Use
  Company Number: US-ASTRAZENECA-2018SF21514

PATIENT
  Age: 64 Year
  Sex: Male
  Weight: 79.4 kg

DRUGS (22)
  1. NEXIUM [Suspect]
     Active Substance: ESOMEPRAZOLE MAGNESIUM
     Indication: GASTROOESOPHAGEAL REFLUX DISEASE
     Route: 048
     Dates: start: 2006, end: 2017
  2. SPIRONOLACTONE. [Concomitant]
     Active Substance: SPIRONOLACTONE
  3. FELDENE [Concomitant]
     Active Substance: PIROXICAM
  4. NAPROXEN. [Concomitant]
     Active Substance: NAPROXEN
  5. TAGAMET [Concomitant]
     Active Substance: CIMETIDINE
  6. LANSOPRAZOLE. [Suspect]
     Active Substance: LANSOPRAZOLE
     Route: 065
     Dates: start: 2006, end: 2017
  7. CYCLOBENZAPRINE. [Concomitant]
     Active Substance: CYCLOBENZAPRINE
  8. AMOXICILLIN. [Concomitant]
     Active Substance: AMOXICILLIN
  9. OLMESARTAN [Concomitant]
     Active Substance: OLMESARTAN
  10. CEPHALEXIN. [Concomitant]
     Active Substance: CEPHALEXIN
  11. CLONAZEPAM. [Concomitant]
     Active Substance: CLONAZEPAM
  12. LISINOPRIL. [Concomitant]
     Active Substance: LISINOPRIL
  13. SPIRONOLACTONE. [Concomitant]
     Active Substance: SPIRONOLACTONE
  14. GABAPENTIN. [Concomitant]
     Active Substance: GABAPENTIN
  15. ULTRAM [Concomitant]
     Active Substance: TRAMADOL HYDROCHLORIDE
  16. FAMOTIDINE. [Concomitant]
     Active Substance: FAMOTIDINE
  17. AMLODIPINE [Concomitant]
     Active Substance: AMLODIPINE BESYLATE
  18. NEXIUM [Suspect]
     Active Substance: ESOMEPRAZOLE MAGNESIUM
     Indication: GASTROOESOPHAGEAL REFLUX DISEASE
     Dosage: GENERIC
     Route: 065
     Dates: start: 2006, end: 2012
  19. PANTOPRAZOLE [Suspect]
     Active Substance: PANTOPRAZOLE
     Indication: GASTROOESOPHAGEAL REFLUX DISEASE
     Route: 065
     Dates: start: 2006, end: 2017
  20. ALBUTEROL. [Concomitant]
     Active Substance: ALBUTEROL
  21. CELEBREX [Concomitant]
     Active Substance: CELECOXIB
  22. LISINOPRIL. [Concomitant]
     Active Substance: LISINOPRIL

REACTIONS (2)
  - Chronic kidney disease [Not Recovered/Not Resolved]
  - Tubulointerstitial nephritis [Not Recovered/Not Resolved]

NARRATIVE: CASE EVENT DATE: 2017
